FAERS Safety Report 8988916 (Version 1)
Quarter: 2012Q4

REPORT INFORMATION
  Report Type: 
  Country: GB (occurrence: GB)
  Receive Date: 20121228
  Receipt Date: 20121228
  Transmission Date: 20130627
  Serious: Yes (Death)
  Sender: FDA-Public Use
  Company Number: PHHO2012GB018579

PATIENT
  Sex: Female

DRUGS (1)
  1. DICLOFENAC [Suspect]
     Indication: OSTEOARTHRITIS
     Dosage: 25 mg, TID
     Route: 048
     Dates: start: 20100208

REACTIONS (1)
  - Circulatory collapse [Fatal]
